FAERS Safety Report 5031686-9 (Version None)
Quarter: 2006Q2

REPORT INFORMATION
  Report Type: 
  Country: None (occurrence: None)
  Receive Date: 20060616
  Receipt Date: 20060601
  Transmission Date: 20061013
  Serious: Yes (Death, Other)
  Sender: FDA-Public Use
  Company Number: US-2006-006922

PATIENT
  Age: 65 Year
  Sex: Male

DRUGS (3)
  1. REFLUDAN [Suspect]
     Indication: HEPARIN-INDUCED THROMBOCYTOPENIA
     Dosage: INTRAVENOUS
     Route: 042
  2. ARGATROBAN(ARGATROBAN) [Suspect]
  3. WARFARIN SODIUM [Suspect]

REACTIONS (9)
  - AORTIC DISSECTION [None]
  - AORTIC VALVE INCOMPETENCE [None]
  - CARDIAC ARREST [None]
  - CHEST PAIN [None]
  - DRUG EFFECT DECREASED [None]
  - HAEMODIALYSIS [None]
  - HEMIPARESIS [None]
  - HEPATIC FUNCTION ABNORMAL [None]
  - RENAL FAILURE ACUTE [None]
